FAERS Safety Report 13560095 (Version 2)
Quarter: 2017Q2

REPORT INFORMATION
  Report Type: Spontaneous
  Country: AU (occurrence: AU)
  Receive Date: 20170518
  Receipt Date: 20170602
  Transmission Date: 20170830
  Serious: Yes (Hospitalization)
  Sender: FDA-Public Use
  Company Number: AU-CONCORDIA PHARMACEUTICALS INC.-GSH201705-003022

PATIENT
  Age: 84 Year
  Sex: Male

DRUGS (1)
  1. HYDROXYCHLOROQUINE [Suspect]
     Active Substance: HYDROXYCHLOROQUINE
     Indication: RHEUMATOID ARTHRITIS
     Route: 065

REACTIONS (23)
  - Encephalitis [Unknown]
  - Depressed level of consciousness [Unknown]
  - Dysarthria [Unknown]
  - Nystagmus [Unknown]
  - CSF white blood cell count increased [Unknown]
  - Inappropriate antidiuretic hormone secretion [Recovered/Resolved]
  - Polymerase chain reaction positive [Unknown]
  - Confusional state [Unknown]
  - Abnormal behaviour [Unknown]
  - Somnolence [Unknown]
  - Balance disorder [Unknown]
  - Dysmetria [Unknown]
  - CSF protein increased [Unknown]
  - CSF glucose decreased [Unknown]
  - C-reactive protein increased [Unknown]
  - Varicella zoster virus infection [Unknown]
  - Encephalitis [Recovering/Resolving]
  - Pleocytosis [Unknown]
  - Hyponatraemia [Unknown]
  - Blood osmolarity increased [Unknown]
  - Ataxia [Unknown]
  - Cerebellar syndrome [Unknown]
  - Intention tremor [Unknown]
